FAERS Safety Report 6325923-8 (Version None)
Quarter: 2009Q3

REPORT INFORMATION
  Report Type: 
  Country: None (occurrence: None)
  Receive Date: 20090824
  Receipt Date: 20090817
  Transmission Date: 20100115
  Serious: Yes (Death, Other)
  Sender: FDA-Public Use
  Company Number: TR-BRISTOL-MYERS SQUIBB COMPANY-14743850

PATIENT
  Sex: Male

DRUGS (3)
  1. MITOMYCIN [Suspect]
     Indication: METASTASES TO LIVER
  2. LIPIODOL [Suspect]
     Indication: METASTASES TO LIVER
  3. SPHEREX [Suspect]
     Indication: METASTASES TO LIVER

REACTIONS (4)
  - BILE DUCT NECROSIS [None]
  - HEPATIC CYST [None]
  - HEPATIC FAILURE [None]
  - HEPATIC INFARCTION [None]
